FAERS Safety Report 9408673 (Version 1)
Quarter: 2013Q3

REPORT INFORMATION
  Report Type: Spontaneous
  Country: US (occurrence: None)
  Receive Date: 20130716
  Receipt Date: 20130716
  Transmission Date: 20140515
  Serious: Yes (Life-Threatening)
  Sender: FDA-Public Use
  Company Number: 2013P1011370

PATIENT
  Sex: Female

DRUGS (3)
  1. CEFTRIAXONE [Suspect]
     Indication: SWELLING
     Dates: start: 2013
  2. CEPHALEXIN [Suspect]
     Indication: GINGIVAL INFLAMMATION
  3. LIDOCAINE [Suspect]
     Indication: SWELLING
     Dates: start: 2013

REACTIONS (4)
  - Brain oedema [None]
  - Encephalitis [None]
  - Pain [None]
  - Drug hypersensitivity [None]
